FAERS Safety Report 16541732 (Version 1)
Quarter: 2019Q3

REPORT INFORMATION
  Report Type: Report from Study
  Country: US (occurrence: US)
  Receive Date: 20190708
  Receipt Date: 20190708
  Transmission Date: 20191004
  Serious: Yes (Hospitalization)
  Sender: FDA-Public Use
  Company Number: US-ACTELION-A-NJ2016-132061

PATIENT
  Age: 40 Year
  Sex: Female

DRUGS (27)
  1. PROTONIX [Concomitant]
     Active Substance: PANTOPRAZOLE SODIUM
     Dosage: 40 MG, QD
  2. COUMADIN [Concomitant]
     Active Substance: WARFARIN SODIUM
     Dosage: 7 MG, QD
  3. CLARITIN [Concomitant]
     Active Substance: LORATADINE
  4. CARAFATE [Concomitant]
     Active Substance: SUCRALFATE
     Dosage: 1 G, BID
  5. SENNA [Concomitant]
     Active Substance: SENNA LEAF\SENNOSIDES\SENNOSIDES A AND B
     Dosage: 8.6 MG, PRN
  6. NEXIUM [Concomitant]
     Active Substance: ESOMEPRAZOLE MAGNESIUM
  7. REMODULIN [Suspect]
     Active Substance: TREPROSTINIL
     Indication: PRODUCT USED FOR UNKNOWN INDICATION
     Route: 065
  8. PRILOSEC [Concomitant]
     Active Substance: OMEPRAZOLE MAGNESIUM
     Dosage: 20 MG, QD
  9. FLONASE [Concomitant]
     Active Substance: FLUTICASONE PROPIONATE
     Dosage: 50 MCG, BID
  10. COUMADIN [Concomitant]
     Active Substance: WARFARIN SODIUM
     Dosage: 6 MG, QD
  11. OPSUMIT [Suspect]
     Active Substance: MACITENTAN
     Dosage: 10 MG, QD
     Route: 048
     Dates: start: 20160127
  12. ORENITRAM [Suspect]
     Active Substance: TREPROSTINIL
     Indication: PRODUCT USED FOR UNKNOWN INDICATION
     Route: 065
  13. LASIX [Concomitant]
     Active Substance: FUROSEMIDE
     Dosage: 40 MG, BID
  14. DULERA [Concomitant]
     Active Substance: FORMOTEROL FUMARATE DIHYDRATE\MOMETASONE FUROATE
     Dosage: 100-5 MCG, BID
  15. ZANTAC [Concomitant]
     Active Substance: RANITIDINE HYDROCHLORIDE
     Dosage: 300 MG, QHS
  16. VENTOLIN HFA [Concomitant]
     Active Substance: ALBUTEROL SULFATE
  17. ADVAIR HFA [Concomitant]
     Active Substance: FLUTICASONE PROPIONATE\SALMETEROL XINAFOATE
  18. CYCLOBENZAPRINE HCL [Concomitant]
     Active Substance: CYCLOBENZAPRINE HYDROCHLORIDE
  19. PAXIL [Concomitant]
     Active Substance: PAROXETINE HYDROCHLORIDE
  20. OPSUMIT [Suspect]
     Active Substance: MACITENTAN
     Indication: PULMONARY ARTERIAL HYPERTENSION
     Dosage: 10 MG, QD
     Route: 048
     Dates: start: 20190115
  21. RIOCIGUAT. [Concomitant]
     Active Substance: RIOCIGUAT
     Dosage: 2.5 MG, TID
  22. XANAX [Concomitant]
     Active Substance: ALPRAZOLAM
     Dosage: 0.5 MG, PRN
  23. ACETAMINOPHEN. [Concomitant]
     Active Substance: ACETAMINOPHEN
  24. SYMBICORT [Concomitant]
     Active Substance: BUDESONIDE\FORMOTEROL FUMARATE DIHYDRATE
     Dosage: 80-4.5 MCG, BID
  25. ELIQUIS [Concomitant]
     Active Substance: APIXABAN
  26. FLOVENT HFA [Concomitant]
     Active Substance: FLUTICASONE PROPIONATE
  27. PEPCID [Concomitant]
     Active Substance: FAMOTIDINE

REACTIONS (42)
  - Cough [Recovering/Resolving]
  - Gait disturbance [Recovered/Resolved]
  - Ocular hyperaemia [Not Recovered/Not Resolved]
  - Diarrhoea [Recovering/Resolving]
  - Rash generalised [Recovering/Resolving]
  - Eye swelling [Not Recovered/Not Resolved]
  - Bacterial test positive [Not Recovered/Not Resolved]
  - Back pain [Not Recovered/Not Resolved]
  - Bacterial infection [Not Recovered/Not Resolved]
  - Vasodilation procedure [Recovered/Resolved]
  - Bronchospasm [Not Recovered/Not Resolved]
  - Aspiration [Not Recovered/Not Resolved]
  - Nasal congestion [Not Recovered/Not Resolved]
  - Oropharyngeal pain [Recovering/Resolving]
  - Pain [Recovering/Resolving]
  - Gastrooesophageal reflux disease [Not Recovered/Not Resolved]
  - Oesophagitis [Not Recovered/Not Resolved]
  - Unevaluable event [Not Recovered/Not Resolved]
  - Oxygen saturation decreased [Not Recovered/Not Resolved]
  - Fatigue [Not Recovered/Not Resolved]
  - Asthma [Recovered/Resolved]
  - Oedema peripheral [Not Recovered/Not Resolved]
  - Headache [Recovering/Resolving]
  - Drug hypersensitivity [Not Recovered/Not Resolved]
  - Dyspepsia [Not Recovered/Not Resolved]
  - Pyrexia [Recovering/Resolving]
  - Bone pain [Recovering/Resolving]
  - Viral infection [Recovering/Resolving]
  - Chest pain [Recovering/Resolving]
  - Administration site vesicles [Not Recovered/Not Resolved]
  - Vomiting [Not Recovered/Not Resolved]
  - Peripheral swelling [Recovered/Resolved]
  - Abdominal discomfort [Recovering/Resolving]
  - Hypersensitivity [Not Recovered/Not Resolved]
  - Palpitations [Not Recovered/Not Resolved]
  - Gastritis [Not Recovered/Not Resolved]
  - Fluid retention [Not Recovered/Not Resolved]
  - Chest discomfort [Recovering/Resolving]
  - Pain in extremity [Not Recovered/Not Resolved]
  - Anticoagulation drug level below therapeutic [Not Recovered/Not Resolved]
  - Hypotension [Not Recovered/Not Resolved]
  - Gastric disorder [Not Recovered/Not Resolved]

NARRATIVE: CASE EVENT DATE: 20160222
